FAERS Safety Report 4496638-6 (Version None)
Quarter: 2004Q4

REPORT INFORMATION
  Report Type: 
  Country: None (occurrence: None)
  Receive Date: 20040923
  Receipt Date: 20040805
  Transmission Date: 20050328
  Serious: No
  Sender: FDA-Public Use
  Company Number: WAES 0408USA01142

PATIENT
  Age: 86 Year
  Sex: Female
  Weight: 48.9885 kg

DRUGS (3)
  1. INVANZ [Suspect]
     Indication: OSTEOMYELITIS
     Dosage: 1 GM/IV
     Route: 042
     Dates: start: 20040731, end: 20040805
  2. UNASYN (AMPICILLIN SODIUM (+) [Concomitant]
  3. HYDROCHLOROTHIAZIDE [Concomitant]

REACTIONS (1)
  - HYPONATRAEMIA [None]
